FAERS Safety Report 7344862-7 (Version None)
Quarter: 2011Q1

REPORT INFORMATION
  Report Type: 
  Country: None (occurrence: None)
  Receive Date: 20110310
  Receipt Date: 20110308
  Transmission Date: 20110831
  Serious: Yes (Hospitalization)
  Sender: FDA-Public Use
  Company Number: JP-EISAI INC-E2020-08599-SPO-JP

PATIENT
  Age: 75 Year
  Sex: Female

DRUGS (15)
  1. ASPARA POTASSIUM [Concomitant]
  2. ASPIRIN [Concomitant]
  3. TAKEPRON [Concomitant]
     Route: 048
  4. TANATRIL [Concomitant]
  5. LOXONIN [Concomitant]
  6. RHYTHMY [Concomitant]
     Route: 048
  7. SERMION [Concomitant]
     Route: 048
  8. LASIX [Concomitant]
  9. WARFARIN [Concomitant]
  10. SELBEX [Concomitant]
     Route: 048
  11. PLETAL [Concomitant]
  12. LYRICA [Concomitant]
     Route: 048
  13. ARICEPT [Suspect]
     Indication: DEMENTIA ALZHEIMER'S TYPE
     Route: 048
  14. VERAPAMIL HCL [Concomitant]
     Route: 048
  15. ALDACTONE [Concomitant]

REACTIONS (1)
  - SICK SINUS SYNDROME [None]
